FAERS Safety Report 10068161 (Version 2)
Quarter: 2014Q2

REPORT INFORMATION
  Report Type: Spontaneous
  Country: US (occurrence: US)
  Receive Date: 20140409
  Receipt Date: 20140425
  Transmission Date: 20141212
  Serious: No
  Sender: FDA-Public Use
  Company Number: US-PFIZER INC-2014093440

PATIENT
  Age: 16 Year
  Sex: Female

DRUGS (3)
  1. LYRICA [Suspect]
     Indication: NEURALGIA
     Dosage: 150 MG, 2X/DAY (TAKE 1 CAPSULE BY MOUTH 2 TIMES DAILY)
     Route: 048
  2. LYRICA [Suspect]
     Indication: MUSCULOSKELETAL PAIN
  3. OXYCONTIN [Concomitant]
     Dosage: 20 MG, UNK (QHS))

REACTIONS (2)
  - Off label use [Unknown]
  - Therapeutic response changed [Unknown]
